FAERS Safety Report 9462376 (Version 1)
Quarter: 2013Q3

REPORT INFORMATION
  Report Type: Spontaneous
  Country: US (occurrence: None)
  Receive Date: 20130815
  Receipt Date: 20130815
  Transmission Date: 20140515
  Serious: Yes (Other)
  Sender: FDA-Public Use
  Company Number: None

PATIENT
  Age: 49 Year
  Sex: Male
  Weight: 84 kg

DRUGS (1)
  1. LINEZOLID [Suspect]
     Indication: WOUND
     Dates: start: 20130530, end: 20130707

REACTIONS (1)
  - Pancytopenia [None]
